FAERS Safety Report 7926724-7 (Version None)
Quarter: 2011Q4

REPORT INFORMATION
  Report Type: 
  Country: None (occurrence: None)
  Receive Date: 20111118
  Receipt Date: 20111108
  Transmission Date: 20120403
  Serious: Yes (Other)
  Sender: FDA-Public Use
  Company Number: US-JNJFOC-20111103369

PATIENT
  Sex: Female
  Weight: 68.04 kg

DRUGS (2)
  1. CELEXA [Concomitant]
     Indication: DEPRESSION
     Route: 048
     Dates: start: 20000101
  2. REMICADE [Suspect]
     Indication: CROHN'S DISEASE
     Route: 042
     Dates: start: 20010101

REACTIONS (5)
  - INTESTINAL STENOSIS [None]
  - CROHN'S DISEASE [None]
  - RESPIRATORY DISORDER [None]
  - HYPOTHYROIDISM [None]
  - ERYTHEMA [None]
